FAERS Safety Report 14766532 (Version 3)
Quarter: 2018Q2

REPORT INFORMATION
  Report Type: Report from Study
  Country: None (occurrence: TW)
  Receive Date: 20180416
  Receipt Date: 20180512
  Transmission Date: 20180711
  Serious: Yes (Death, Hospitalization, Other)
  Sender: FDA-Public Use
  Company Number: TW-ABBVIE-17K-153-2049833-00

PATIENT
  Age: 74 Year
  Sex: Male
  Weight: 49 kg

DRUGS (1)
  1. HUMIRA [Suspect]
     Active Substance: ADALIMUMAB
     Indication: RHEUMATOID ARTHRITIS
     Route: 058
     Dates: start: 20110922, end: 20170703

REACTIONS (4)
  - Choking [Fatal]
  - Dialysis [Unknown]
  - Lung neoplasm [Unknown]
  - Influenza [Recovering/Resolving]

NARRATIVE: CASE EVENT DATE: 20170712
